FAERS Safety Report 21227092 (Version 2)
Quarter: 2022Q3

REPORT INFORMATION
  Report Type: Spontaneous
  Country: CA (occurrence: CA)
  Receive Date: 20220818
  Receipt Date: 20220922
  Transmission Date: 20221027
  Serious: Yes (Other)
  Sender: FDA-Public Use
  Company Number: CA-PFIZER INC-202101145754

PATIENT
  Age: 56 Year
  Sex: Female

DRUGS (4)
  1. SOMAVERT [Suspect]
     Active Substance: PEGVISOMANT
     Indication: Acromegaly
     Dosage: 15 MG 7 TIMES A WEEK
     Route: 058
     Dates: start: 20210901, end: 2021
  2. SOMAVERT [Suspect]
     Active Substance: PEGVISOMANT
     Dosage: 30 MG, 1X/DAY
     Route: 058
     Dates: start: 2021, end: 2021
  3. SOMAVERT [Suspect]
     Active Substance: PEGVISOMANT
     Dosage: 40 MG, 1X/DAY
     Route: 058
     Dates: start: 2021, end: 2022
  4. SOMAVERT [Suspect]
     Active Substance: PEGVISOMANT
     Dosage: 60 MG, 1X/DAY
     Route: 058
     Dates: start: 2022, end: 202205

REACTIONS (8)
  - Pituitary tumour [Unknown]
  - Blood growth hormone increased [Recovering/Resolving]
  - Off label use [Unknown]
  - Wrong technique in device usage process [Recovered/Resolved]
  - Product preparation error [Unknown]
  - Poor quality product administered [Unknown]
  - Contusion [Not Recovered/Not Resolved]
  - Injection site pain [Recovered/Resolved]
